FAERS Safety Report 7387641-7 (Version None)
Quarter: 2011Q1

REPORT INFORMATION
  Report Type: 
  Country: None (occurrence: None)
  Receive Date: 20110331
  Receipt Date: 20110325
  Transmission Date: 20110831
  Serious: Yes (Hospitalization)
  Sender: FDA-Public Use
  Company Number: DE-CEPHALON-2011001507

PATIENT
  Age: 47 Year
  Sex: Male
  Weight: 93 kg

DRUGS (4)
  1. BENDAMUSTINE HCL [Suspect]
     Indication: CHRONIC LYMPHOCYTIC LEUKAEMIA
     Route: 042
     Dates: start: 20100909
  2. NEBIVOLOL [Concomitant]
  3. RITUXIMAB [Suspect]
     Indication: CHRONIC LYMPHOCYTIC LEUKAEMIA
     Dates: start: 20100908
  4. RAMIPRIL [Concomitant]

REACTIONS (1)
  - PRODUCTIVE COUGH [None]
